FAERS Safety Report 9624451 (Version 3)
Quarter: 2013Q4

REPORT INFORMATION
  Report Type: Spontaneous
  Country: NO (occurrence: NO)
  Receive Date: 20131015
  Receipt Date: 20131101
  Transmission Date: 20140711
  Serious: Yes (Other)
  Sender: FDA-Public Use
  Company Number: NO-PFIZER INC-2013291279

PATIENT
  Age: 26 Year
  Sex: Male

DRUGS (4)
  1. DALACIN [Suspect]
     Indication: INFECTION
     Dosage: 150 MG, 4X/DAY
     Route: 048
     Dates: start: 20131002, end: 20131008
  2. PREDNISOLONE [Suspect]
     Indication: URTICARIA
     Dosage: 5 MG WITH TREATMENT REGIME 4+3+3+2+2+1+1
     Route: 048
     Dates: start: 20131008, end: 20131014
  3. AMLODIPINE SANDOZ [Concomitant]
     Indication: ARTERIOSPASM CORONARY
     Dosage: 10 MG, 1X/DAY
     Dates: start: 2013
  4. AMLODIPINE SANDOZ [Concomitant]
     Indication: HYPERTENSION

REACTIONS (6)
  - Urticaria [Recovered/Resolved]
  - Rash [Recovered/Resolved]
  - Pruritus generalised [Recovered/Resolved]
  - Anger [Recovered/Resolved]
  - Malaise [Recovered/Resolved]
  - Nausea [Recovered/Resolved]
